FAERS Safety Report 7682300-5 (Version None)
Quarter: 2011Q3

REPORT INFORMATION
  Report Type: 
  Country: None (occurrence: None)
  Receive Date: 20110815
  Receipt Date: 20110719
  Transmission Date: 20111222
  Serious: No
  Sender: FDA-Public Use
  Company Number: US-BAYER-2011-062564

PATIENT
  Age: 56 Year
  Sex: Female

DRUGS (6)
  1. BETASERON [Suspect]
     Indication: RELAPSING-REMITTING MULTIPLE SCLEROSIS
     Dosage: 8 MIU, QOD
     Route: 058
     Dates: start: 20110711
  2. BETASERON [Suspect]
     Dosage: 4 MIU, QOD
     Dates: end: 20110628
  3. IBUPROFEN [Concomitant]
  4. AMBIEN [Concomitant]
  5. AMANTADINE HCL [Concomitant]
  6. BETASERON [Suspect]
     Dosage: 2 MIU, QOD
     Route: 058

REACTIONS (13)
  - COUGH [None]
  - CHEST PAIN [None]
  - INJECTION SITE MASS [None]
  - DYSGEUSIA [None]
  - MUSCLE SPASMS [None]
  - MYALGIA [None]
  - SKIN DISCOMFORT [None]
  - INJECTION SITE ERYTHEMA [None]
  - BODY TEMPERATURE INCREASED [None]
  - OROPHARYNGEAL PAIN [None]
  - MUSCLE TIGHTNESS [None]
  - INJECTION SITE HAEMATOMA [None]
  - DRY THROAT [None]
